FAERS Safety Report 6124865-0 (Version None)
Quarter: 2009Q1

REPORT INFORMATION
  Report Type: 
  Country: None (occurrence: None)
  Receive Date: 20090319
  Receipt Date: 20090309
  Transmission Date: 20090719
  Serious: Yes (Other)
  Sender: FDA-Public Use
  Company Number: ES-ABBOTT-09P-144-0561408-00

PATIENT
  Sex: Female

DRUGS (4)
  1. HUMIRA [Suspect]
     Indication: RHEUMATOID ARTHRITIS
     Route: 058
     Dates: start: 20040914, end: 20081101
  2. HUMIRA [Concomitant]
     Indication: RHEUMATOID ARTHRITIS
     Route: 058
     Dates: start: 20040310
  3. CEMIDON [Concomitant]
     Indication: TUBERCULOSIS TEST POSITIVE
     Dates: start: 20080101
  4. APROVEL [Concomitant]
     Indication: HYPERTENSION
     Dates: start: 20070101

REACTIONS (1)
  - NECROSIS [None]
